FAERS Safety Report 7223200-4 (Version None)
Quarter: 2011Q1

REPORT INFORMATION
  Report Type: 
  Country: None (occurrence: None)
  Receive Date: 20110112
  Receipt Date: 20100302
  Transmission Date: 20110831
  Serious: No
  Sender: FDA-Public Use
  Company Number: US-ALLERGAN-1002753US

PATIENT
  Age: 70 Year
  Sex: Female

DRUGS (2)
  1. GENTEAL                            /00445101/ [Concomitant]
     Indication: DRY EYE
  2. RESTASIS [Suspect]
     Indication: DRY EYE
     Dosage: 1 GTT, BID, BOTH EYES
     Dates: end: 20100201

REACTIONS (3)
  - EYE IRRITATION [None]
  - LACRIMATION INCREASED [None]
  - OCULAR HYPERAEMIA [None]
